FAERS Safety Report 9841538 (Version 1)
Quarter: 2014Q1

REPORT INFORMATION
  Report Type: Spontaneous
  Country: US (occurrence: US)
  Receive Date: 20140124
  Receipt Date: 20140124
  Transmission Date: 20141002
  Serious: Yes (Congenital Anomaly, Other)
  Sender: FDA-Public Use
  Company Number: US-PFIZER INC-2014019769

PATIENT
  Sex: Male

DRUGS (2)
  1. ZOLOFT [Suspect]
     Indication: DEPRESSION
     Dosage: UNK
     Route: 064
     Dates: start: 200209, end: 200212
  2. ZOLOFT [Suspect]
     Indication: ANXIETY

REACTIONS (8)
  - Maternal exposure during pregnancy [Unknown]
  - Gastroschisis [Unknown]
  - Persistent foetal circulation [Unknown]
  - Amblyopia congenital [Unknown]
  - Pneumothorax [Unknown]
  - Pneumomediastinum [Unknown]
  - Visual impairment [Unknown]
  - Cardiac disorder [Unknown]
